FAERS Safety Report 14077074 (Version 2)
Quarter: 2018Q1

REPORT INFORMATION
  Report Type: Report from Study
  Country: US (occurrence: US)
  Receive Date: 20171012
  Receipt Date: 20180120
  Transmission Date: 20180508
  Serious: No
  Sender: FDA-Public Use
  Company Number: GXBR2014US001857

PATIENT
  Sex: Male
  Weight: 42.2 kg

DRUGS (2)
  1. OMNITROPE [Suspect]
     Active Substance: SOMATROPIN
     Indication: GROWTH HORMONE DEFICIENCY
     Dosage: 2 MG, QD X 7 DAYS/WEEK
     Route: 058
     Dates: start: 201407
  2. OMNITROPE [Suspect]
     Active Substance: SOMATROPIN
     Indication: HYPOPITUITARISM
     Dosage: 1.3 MG, QD
     Route: 065
     Dates: start: 20140728

REACTIONS (4)
  - Injection site pain [Not Recovered/Not Resolved]
  - Incorrect dose administered by device [Not Recovered/Not Resolved]
  - Injection site haemorrhage [Not Recovered/Not Resolved]
  - Device issue [Not Recovered/Not Resolved]
